FAERS Safety Report 12760584 (Version 1)
Quarter: 2016Q3

REPORT INFORMATION
  Report Type: Spontaneous
  Country: HU (occurrence: HU)
  Receive Date: 20160919
  Receipt Date: 20160919
  Transmission Date: 20161109
  Serious: Yes (Other)
  Sender: FDA-Public Use
  Company Number: HU-TEVA-693387ISR

PATIENT
  Sex: Female

DRUGS (1)
  1. AMOXICILLIN. [Suspect]
     Active Substance: AMOXICILLIN
     Indication: PYELONEPHRITIS
     Route: 064

REACTIONS (4)
  - Low birth weight baby [Unknown]
  - Apgar score low [Unknown]
  - Bradycardia [Unknown]
  - Foetal exposure during pregnancy [Unknown]
